FAERS Safety Report 7837696-8 (Version None)
Quarter: 2011Q4

REPORT INFORMATION
  Report Type: 
  Country: None (occurrence: None)
  Receive Date: 20111024
  Receipt Date: 20111015
  Transmission Date: 20120403
  Serious: Yes (Other)
  Sender: FDA-Public Use
  Company Number: PHHY2011TR92259

PATIENT
  Age: 62 Year
  Sex: Male

DRUGS (3)
  1. IMATINIB MESYLATE [Suspect]
     Dosage: 600 MG, DAILY
  2. SUNITINIB MALATE [Suspect]
     Dosage: 50 MG PER DAY,4 WEEKS ON, 2 WEEKS OFF WITH 6 WEEKS
  3. IMATINIB MESYLATE [Suspect]
     Dosage: 400 MG, DAILY

REACTIONS (8)
  - RASH [None]
  - DERMATITIS [None]
  - METASTASES TO LIVER [None]
  - NEOPLASM MALIGNANT [None]
  - NEOPLASM PROGRESSION [None]
  - ROSACEA [None]
  - SKIN HYPERPIGMENTATION [None]
  - HYPERKERATOSIS [None]
